FAERS Safety Report 8523505-0 (Version None)
Quarter: 2012Q3

REPORT INFORMATION
  Report Type: 
  Country: None (occurrence: None)
  Receive Date: 20120716
  Receipt Date: 20120716
  Transmission Date: 20120928
  Serious: Yes (Other)
  Sender: FDA-Public Use
  Company Number: None

PATIENT
  Sex: Male

DRUGS (10)
  1. DIAZEPAM [Concomitant]
  2. SINENET [Concomitant]
  3. POPIRAMATE [Concomitant]
  4. CYMBALTA [Concomitant]
  5. PREDNISONE TAB [Suspect]
     Indication: FOOT DEFORMITY
     Dosage: 60 MG TWICE A DAY PO
     Route: 048
     Dates: start: 20120626, end: 20120628
  6. LAMOTRIGINE [Concomitant]
  7. AMPHETAMINE SALT [Concomitant]
  8. GABAPENTIN [Concomitant]
  9. NUVIGIL [Concomitant]
  10. EXELON [Concomitant]

REACTIONS (3)
  - ARTHRALGIA [None]
  - PAIN [None]
  - MUSCULOSKELETAL PAIN [None]
